FAERS Safety Report 13056164 (Version 1)
Quarter: 2016Q4

REPORT INFORMATION
  Report Type: Spontaneous
  Country: US (occurrence: US)
  Receive Date: 20161222
  Receipt Date: 20161222
  Transmission Date: 20170207
  Serious: Yes (Other)
  Sender: FDA-Public Use
  Company Number: US-PURDUE PHARMA-USA-2016-0130434

PATIENT
  Sex: Female

DRUGS (2)
  1. LEXAPRO [Concomitant]
     Active Substance: ESCITALOPRAM OXALATE
     Indication: DEPRESSION
     Dosage: 20 MG, DAILY
     Route: 048
  2. DILAUDID [Suspect]
     Active Substance: HYDROMORPHONE HYDROCHLORIDE
     Indication: ANALGESIC THERAPY
     Dosage: 1 TABLET, QID
     Route: 048
     Dates: end: 201602

REACTIONS (5)
  - Abnormal behaviour [Unknown]
  - Dizziness [Recovered/Resolved]
  - Unevaluable event [Unknown]
  - Drug dependence [Unknown]
  - Memory impairment [Recovered/Resolved]
